FAERS Safety Report 23709836 (Version 4)
Quarter: 2025Q4

REPORT INFORMATION
  Report Type: Report from Study
  Country: KR (occurrence: KR)
  Receive Date: 20240405
  Receipt Date: 20251215
  Transmission Date: 20260117
  Serious: Yes (Death, Hospitalization)
  Sender: ABBVIE
  Company Number: KR-ABBVIE-5704780

PATIENT
  Age: 77 Year
  Sex: Female
  Weight: 63 kg

DRUGS (36)
  1. VENCLEXTA [Suspect]
     Active Substance: VENETOCLAX
     Indication: Acute myeloid leukaemia
     Route: 048
     Dates: start: 20240229, end: 20240313
  2. VENCLEXTA [Suspect]
     Active Substance: VENETOCLAX
     Indication: Acute myeloid leukaemia
     Route: 048
     Dates: start: 20240228, end: 20240228
  3. VENCLEXTA [Suspect]
     Active Substance: VENETOCLAX
     Indication: Acute myeloid leukaemia
     Route: 048
     Dates: start: 20240227, end: 20240227
  4. VENCLEXTA [Suspect]
     Active Substance: VENETOCLAX
     Indication: Acute myeloid leukaemia
     Route: 048
     Dates: start: 20240226, end: 20240226
  5. VENCLEXTA [Suspect]
     Active Substance: VENETOCLAX
     Indication: Acute myeloid leukaemia
     Route: 048
     Dates: start: 20240321, end: 20240327
  6. VENCLEXTA [Suspect]
     Active Substance: VENETOCLAX
     Indication: Acute myeloid leukaemia
     Dosage: 0MG
     Route: 048
     Dates: start: 20240401, end: 20240401
  7. VENCLEXTA [Suspect]
     Active Substance: VENETOCLAX
     Indication: Acute myeloid leukaemia
     Dosage: 0MG
     Route: 048
     Dates: start: 20240402, end: 20240402
  8. VENCLEXTA [Suspect]
     Active Substance: VENETOCLAX
     Indication: Acute myeloid leukaemia
     Dosage: 0MG
     Route: 048
     Dates: start: 20240314, end: 20240320
  9. VENCLEXTA [Suspect]
     Active Substance: VENETOCLAX
     Indication: Acute myeloid leukaemia
     Route: 048
     Dates: start: 20240328, end: 20240331
  10. JARDIANCE [Concomitant]
     Active Substance: EMPAGLIFLOZIN
     Indication: Diabetes mellitus
     Dosage: 10 MG
     Route: 048
  11. BENFOREX [Concomitant]
     Indication: Vitamin supplementation
     Route: 048
     Dates: start: 20240223
  12. NOXAFIL [Concomitant]
     Active Substance: POSACONAZOLE
     Indication: Infection prophylaxis
     Dosage: GASTRO RESISTANT TAB 100MG
     Route: 048
     Dates: start: 20240228, end: 20240315
  13. DACOGEN [Concomitant]
     Active Substance: DECITABINE
     Indication: Acute myeloid leukaemia
     Route: 042
     Dates: start: 20240226, end: 20240301
  14. EZETIMIBE [Concomitant]
     Active Substance: EZETIMIBE
     Indication: Coronary artery disease
     Route: 048
  15. ANAPROX [Concomitant]
     Active Substance: NAPROXEN SODIUM
     Indication: Pain prophylaxis
     Dosage: TIME INTERVAL: AS NECESSARY: 275MG
     Route: 048
     Dates: start: 20240402
  16. LEVOKACIN [Concomitant]
     Indication: Bronchopulmonary aspergillosis
     Dosage: STRENGHT-750 MG
     Route: 048
     Dates: start: 20240327
  17. PREGREL [Concomitant]
     Indication: Coronary artery disease
     Route: 048
  18. AMINO ACIDS\DEXTROSE\ELECTROLYTES NOS\SOYBEAN OIL\VITAMINS [Concomitant]
     Active Substance: AMINO ACIDS\DEXTROSE\ELECTROLYTES NOS\SOYBEAN OIL\VITAMINS
     Indication: Nutritional supplementation
     Dosage: STRENGTH-1085ML
     Route: 042
     Dates: start: 20240313, end: 20240327
  19. TRIMETAZIDINE DIHYDROCHLORIDE [Concomitant]
     Active Substance: TRIMETAZIDINE DIHYDROCHLORIDE
     Indication: Coronary artery disease
     Dosage: STRENGHT-35MG
     Route: 048
  20. VFEND [Concomitant]
     Active Substance: VORICONAZOLE
     Indication: Bronchopulmonary aspergillosis
     Dosage: 200 MG
     Route: 048
     Dates: start: 20240327
  21. VFEND [Concomitant]
     Active Substance: VORICONAZOLE
     Indication: Bronchopulmonary aspergillosis
     Dosage: 200 MG
     Route: 048
     Dates: start: 20240223, end: 20240227
  22. KANARB [Concomitant]
     Indication: Hypertension
     Dosage: 30 MG
     Route: 048
  23. Herben Retard [Concomitant]
     Indication: Hypertension
     Dosage: STRENGH-90MG
     Route: 048
  24. METOCLOPRAMIDE HYDROCHLORIDE [Concomitant]
     Active Substance: METOCLOPRAMIDE HYDROCHLORIDE
     Indication: Prophylaxis of nausea and vomiting
     Route: 042
     Dates: start: 20240228, end: 20240229
  25. METOCLOPRAMIDE HYDROCHLORIDE [Concomitant]
     Active Substance: METOCLOPRAMIDE HYDROCHLORIDE
     Indication: Prophylaxis of nausea and vomiting
     Dosage: TIME INTERVAL: AS NECESSARY: MACPERAN INJ 2ML
     Route: 042
     Dates: start: 20240315, end: 20240328
  26. LEVOFLOXACIN [Concomitant]
     Active Substance: LEVOFLOXACIN
     Indication: Infection prophylaxis
     Dosage: 500MG
     Route: 048
     Dates: start: 20240224
  27. METFORMIN HYDROCHLORIDE [Concomitant]
     Active Substance: METFORMIN HYDROCHLORIDE
     Indication: Diabetes mellitus
     Dosage: EXTENDED RELEASE TABLET
     Route: 048
  28. TEGOPRAZAN [Concomitant]
     Active Substance: TEGOPRAZAN
     Indication: Prophylaxis
     Dosage: STRENGTH-50MG
     Route: 048
     Dates: start: 20240328, end: 20240402
  29. TRAMADOL HCL [Concomitant]
     Active Substance: TRAMADOL HYDROCHLORIDE
     Indication: Pain in extremity
     Dosage: SINIL
     Route: 042
     Dates: start: 20240321, end: 20240327
  30. SOLONDO [Concomitant]
     Indication: Bronchopulmonary aspergillosis
     Route: 048
     Dates: start: 20240328, end: 20240402
  31. LIPITOR [Concomitant]
     Active Substance: ATORVASTATIN CALCIUM
     Indication: Dyslipidaemia
     Dosage: 20 MG
     Route: 048
  32. Sinil folic acid [Concomitant]
     Indication: Vitamin supplementation
     Dosage: STRENGTH-1MG
     Route: 048
     Dates: start: 20240223
  33. BASPO [Concomitant]
     Indication: Injection site extravasation
     Dosage: TIME INTERVAL: AS NECESSARY
     Route: 062
     Dates: start: 20240321, end: 20240328
  34. NEBIVOLOL HYDROCHLORIDE [Concomitant]
     Active Substance: NEBIVOLOL HYDROCHLORIDE
     Indication: Hypertension
     Route: 048
  35. LASIX [Concomitant]
     Active Substance: FUROSEMIDE
     Indication: Prophylaxis
     Dosage: TIME INTERVAL: AS NECESSARY
     Route: 048
     Dates: start: 20240402
  36. METOCLOPRAMIDE HYDROCHLORIDE [Concomitant]
     Active Substance: METOCLOPRAMIDE HYDROCHLORIDE
     Indication: Nausea
     Dosage: TIME INTERVAL: AS NECESSARY: MACPERAN INJ 2ML
     Route: 042
     Dates: start: 20240315, end: 20240328

REACTIONS (2)
  - Asthenia [Fatal]
  - Bronchopulmonary aspergillosis [Recovered/Resolved]

NARRATIVE: CASE EVENT DATE: 20240312
